FAERS Safety Report 6327454-8 (Version None)
Quarter: 2009Q3

REPORT INFORMATION
  Report Type: 
  Country: None (occurrence: None)
  Receive Date: 20090825
  Receipt Date: 20090820
  Transmission Date: 20100115
  Serious: Yes (Other)
  Sender: FDA-Public Use
  Company Number: FI-WYE-G04282109

PATIENT
  Sex: Female

DRUGS (5)
  1. EFFEXOR [Suspect]
     Indication: PAIN
     Route: 048
     Dates: end: 20090101
  2. SULFASALAZINE [Concomitant]
     Dosage: UNSPECIFIED
  3. NEXIUM [Concomitant]
     Dosage: UNSPECIFIED
  4. CORTISONE [Concomitant]
     Dosage: UNSPECIFIED
  5. LYRICA [Concomitant]
     Dosage: UNSPECIFIED

REACTIONS (4)
  - EAR NEOPLASM [None]
  - HALLUCINATION, AUDITORY [None]
  - PSYCHOTIC BEHAVIOUR [None]
  - TINNITUS [None]
